FAERS Safety Report 15290394 (Version 1)
Quarter: 2018Q4

REPORT INFORMATION
  Report Type: Spontaneous
  Country: US (occurrence: US)
  Receive Date: 20180817
  Receipt Date: 20180817
  Transmission Date: 20190204
  Serious: No
  Sender: FDA-Public Use
  Company Number: US-009507513-1805USA014598

PATIENT
  Age: 42 Year
  Sex: Female
  Weight: 77.1 kg

DRUGS (1)
  1. BETAMETHASONE DIPROPIONATE (+) SALICYLIC ACID [Suspect]
     Active Substance: BETAMETHASONE DIPROPIONATE\SALICYLIC ACID
     Indication: PRODUCT USE IN UNAPPROVED INDICATION
     Dosage: UNK
     Route: 061
     Dates: start: 20180527, end: 20180528

REACTIONS (8)
  - Medical device site pain [Unknown]
  - Sensation of foreign body [Unknown]
  - Device ineffective [Unknown]
  - Product use issue [Unknown]
  - Product use complaint [Unknown]
  - Throat irritation [Unknown]
  - Oropharyngeal pain [Unknown]
  - Product administration error [Unknown]

NARRATIVE: CASE EVENT DATE: 20180527
